FAERS Safety Report 24891190 (Version 7)
Quarter: 2025Q3

REPORT INFORMATION
  Report Type: Report from Study
  Country: JP (occurrence: JP)
  Receive Date: 20250127
  Receipt Date: 20250710
  Transmission Date: 20251021
  Serious: Yes (Hospitalization)
  Sender: PFIZER
  Company Number: JP-PFIZER INC-PV202500010740

PATIENT
  Age: 9 Month
  Sex: Male
  Weight: 8.7 kg

DRUGS (11)
  1. SIROLIMUS [Suspect]
     Active Substance: SIROLIMUS
     Indication: Kaposiform haemangioendothelioma
     Dosage: 0.2 MG, DAILY
     Dates: start: 20240125, end: 20240331
  2. SIROLIMUS [Suspect]
     Active Substance: SIROLIMUS
     Dosage: 0.4 MG, DAILY
     Dates: start: 20240401, end: 20240612
  3. SIROLIMUS [Suspect]
     Active Substance: SIROLIMUS
     Dosage: 0.5 MG, DAILY
     Dates: start: 20240613, end: 20240827
  4. SIROLIMUS [Suspect]
     Active Substance: SIROLIMUS
     Indication: Kaposiform haemangioendothelioma
     Dosage: 0.4 MG, DAILY
     Dates: start: 20240828, end: 20240918
  5. SIROLIMUS [Suspect]
     Active Substance: SIROLIMUS
     Dosage: 0.6 MG, DAILY
     Dates: start: 20240919, end: 20241002
  6. SIROLIMUS [Suspect]
     Active Substance: SIROLIMUS
     Dosage: 1 MG, DAILY
     Dates: start: 20241003, end: 20241106
  7. SIROLIMUS [Suspect]
     Active Substance: SIROLIMUS
     Dosage: 1.2 MG, DAILY
     Dates: start: 20241107, end: 20241230
  8. SIROLIMUS [Suspect]
     Active Substance: SIROLIMUS
     Dosage: 1.2 MG, DAILY
     Route: 048
     Dates: start: 20250116
  9. SULFAMETHOXAZOLE\TRIMETHOPRIM [Concomitant]
     Active Substance: SULFAMETHOXAZOLE\TRIMETHOPRIM
     Indication: Prophylaxis
     Route: 048
  10. PROPRANOLOL HYDROCHLORIDE [Concomitant]
     Active Substance: PROPRANOLOL HYDROCHLORIDE
     Indication: Kaposiform haemangioendothelioma
     Route: 048
     Dates: start: 20230722
  11. FERRIC PYROPHOSPHATE [Concomitant]
     Active Substance: FERRIC PYROPHOSPHATE
     Route: 048
     Dates: start: 20240321

REACTIONS (3)
  - Norovirus infection [Recovering/Resolving]
  - Iron deficiency anaemia [Recovering/Resolving]
  - Disease progression [Recovering/Resolving]

NARRATIVE: CASE EVENT DATE: 20240321
